FAERS Safety Report 21902281 (Version 1)
Quarter: 2023Q1

REPORT INFORMATION
  Report Type: Spontaneous
  Country: DE (occurrence: DE)
  Receive Date: 20230124
  Receipt Date: 20230124
  Transmission Date: 20230417
  Serious: No
  Sender: FDA-Public Use
  Company Number: DE-ALKEM LABORATORIES LIMITED-DE-ALKEM-2022-14333

PATIENT
  Sex: Male

DRUGS (1)
  1. LACOSAMIDE [Suspect]
     Active Substance: LACOSAMIDE
     Indication: Polyneuropathy
     Dosage: UNK UNK, QD (FILM-COATED TABLET)
     Route: 048

REACTIONS (2)
  - Priapism [Recovered/Resolved]
  - Off label use [Unknown]
